FAERS Safety Report 4758856-9 (Version None)
Quarter: 2005Q3

REPORT INFORMATION
  Report Type: 
  Country: None (occurrence: None)
  Receive Date: 20050831
  Receipt Date: 20050815
  Transmission Date: 20060218
  Serious: No
  Sender: FDA-Public Use
  Company Number: TRP_0138_2005

PATIENT
  Age: 50 Year
  Sex: Male

DRUGS (3)
  1. RIBASPHERE [Suspect]
     Dosage: 800 MG PO
     Route: 048
     Dates: start: 20050101, end: 20050721
  2. PEGASYS [Suspect]
     Dosage: 180 MCG SC
     Route: 058
     Dates: start: 20050101, end: 20050721
  3. PROCRIT [Concomitant]

REACTIONS (7)
  - ABDOMINAL DISTENSION [None]
  - ARTHRALGIA [None]
  - DYSKINESIA [None]
  - FATIGUE [None]
  - HAEMOGLOBIN DECREASED [None]
  - MUSCLE SPASMS [None]
  - MUSCLE TWITCHING [None]
